FAERS Safety Report 5821791-9 (Version None)
Quarter: 2008Q3

REPORT INFORMATION
  Report Type: 
  Country: None (occurrence: None)
  Receive Date: 20080722
  Receipt Date: 20080708
  Transmission Date: 20090109
  Serious: Yes (Other)
  Sender: FDA-Public Use
  Company Number: TRP_05806_2008

PATIENT
  Age: 53 Year
  Sex: Female
  Weight: 61.6892 kg

DRUGS (3)
  1. RIBASPHERE [Suspect]
     Indication: HEPATITIS C
     Dosage: (DF ORAL)
     Route: 048
     Dates: start: 20070528, end: 20071224
  2. PEG-INTRON [Suspect]
     Indication: HEPATITIS C
     Dosage: (DF SUBCUTANEOUS)
     Route: 058
     Dates: start: 20070528, end: 20071224
  3. NEURONTIN [Suspect]
     Indication: CHONDROPATHY
     Dosage: (DF)

REACTIONS (25)
  - ARTHRALGIA [None]
  - BACK PAIN [None]
  - BRONCHITIS [None]
  - CANDIDIASIS [None]
  - CONDITION AGGRAVATED [None]
  - CONSTIPATION [None]
  - DEHYDRATION [None]
  - DIARRHOEA HAEMORRHAGIC [None]
  - DRY SKIN [None]
  - DYSARTHRIA [None]
  - DYSPHAGIA [None]
  - FATIGUE [None]
  - HAEMATOCHEZIA [None]
  - HEART RATE IRREGULAR [None]
  - INJECTION SITE ERYTHEMA [None]
  - INJECTION SITE RASH [None]
  - MALAISE [None]
  - MELAENA [None]
  - MITRAL VALVE PROLAPSE [None]
  - MOBILITY DECREASED [None]
  - MOUTH ULCERATION [None]
  - NECK PAIN [None]
  - OROPHARYNGEAL BLISTERING [None]
  - PANIC ATTACK [None]
  - SWOLLEN TONGUE [None]
